FAERS Safety Report 13770747 (Version 1)
Quarter: 2017Q3

REPORT INFORMATION
  Report Type: Spontaneous
  Country: US (occurrence: US)
  Receive Date: 20170720
  Receipt Date: 20170720
  Transmission Date: 20171127
  Serious: No
  Sender: FDA-Public Use
  Company Number: None

PATIENT
  Sex: Female

DRUGS (1)
  1. BOTOX [Suspect]
     Active Substance: ONABOTULINUMTOXINA
     Indication: PRODUCT USED FOR UNKNOWN INDICATION
     Dosage: 300 UNITS Q 90 DAYS IM
     Route: 030
     Dates: start: 20170117

REACTIONS (4)
  - Muscle strain [None]
  - Jaw disorder [None]
  - Facial paralysis [None]
  - Lip disorder [None]
